FAERS Safety Report 12889733 (Version 1)
Quarter: 2016Q4

REPORT INFORMATION
  Report Type: Spontaneous
  Country: DE (occurrence: DE)
  Receive Date: 20161027
  Receipt Date: 20161027
  Transmission Date: 20170207
  Serious: Yes (Death, Other)
  Sender: FDA-Public Use
  Company Number: DE-MYLANLABS-2016M1046212

PATIENT

DRUGS (1)
  1. DEXAMETHASONE. [Suspect]
     Active Substance: DEXAMETHASONE
     Indication: PRODUCT USED FOR UNKNOWN INDICATION
     Route: 064

REACTIONS (6)
  - Placental insufficiency [Recovered/Resolved]
  - Foetal placental thrombosis [Recovered/Resolved]
  - Foetal exposure during pregnancy [Recovered/Resolved]
  - Death [Fatal]
  - Foetal growth restriction [Recovered/Resolved]
  - Premature baby [Recovered/Resolved]
